FAERS Safety Report 8446006 (Version 2)
Quarter: 2013Q1

REPORT INFORMATION
  Report Type: Spontaneous
  Country: US (occurrence: US)
  Receive Date: 20120307
  Receipt Date: 20130315
  Transmission Date: 20140127
  Serious: No
  Sender: FDA-Public Use
  Company Number: US-ASTRAZENECA-2009UW15451

PATIENT
  Age: 49 Year
  Sex: Female

DRUGS (2)
  1. ZOMIG [Suspect]
     Indication: MIGRAINE
     Route: 048
  2. ZOMIG [Suspect]
     Indication: MIGRAINE
     Dosage: 1/2 TABLET AT ONSET, MAY REPEAT 1 TIME AS NEEDED
     Route: 048

REACTIONS (8)
  - Intentional overdose [Unknown]
  - Migraine [Unknown]
  - Hypokinesia [Unknown]
  - Influenza [Unknown]
  - Headache [Unknown]
  - Sinus headache [Unknown]
  - Incorrect dose administered [Unknown]
  - Drug dose omission [Unknown]
